FAERS Safety Report 4808601-3 (Version None)
Quarter: 2005Q4

REPORT INFORMATION
  Report Type: 
  Country: None (occurrence: None)
  Receive Date: 20051025
  Receipt Date: 20051020
  Transmission Date: 20060501
  Serious: Yes (Other)
  Sender: FDA-Public Use
  Company Number: RU-GLAXOSMITHKLINE-B0398148A

PATIENT
  Age: 27 Year
  Sex: Female
  Weight: 76 kg

DRUGS (1)
  1. AUGMENTIN '125' [Suspect]
     Route: 065
     Dates: start: 20050610, end: 20050617

REACTIONS (1)
  - CYSTITIS [None]
